FAERS Safety Report 7778572-9 (Version None)
Quarter: 2011Q3

REPORT INFORMATION
  Report Type: 
  Country: None (occurrence: None)
  Receive Date: 20110926
  Receipt Date: 20110914
  Transmission Date: 20111222
  Serious: Yes (Other)
  Sender: FDA-Public Use
  Company Number: US-BAYER-2011-059584

PATIENT
  Age: 35 Year
  Sex: Female

DRUGS (2)
  1. MIRENA [Suspect]
     Indication: CONTRACEPTION
     Dosage: 20 MCG/24HR, CONT
     Route: 015
     Dates: start: 20110415, end: 20110613
  2. LO LOESTRIN FE [Concomitant]
     Dosage: UNK UNK, QD
     Route: 048
     Dates: start: 20110416

REACTIONS (1)
  - DEVICE DISLOCATION [None]
